FAERS Safety Report 14022595 (Version 1)
Quarter: 2017Q3

REPORT INFORMATION
  Report Type: Spontaneous
  Country: GB (occurrence: GB)
  Receive Date: 20170929
  Receipt Date: 20170929
  Transmission Date: 20171128
  Serious: Yes (Hospitalization, Other)
  Sender: FDA-Public Use
  Company Number: GB-UCBSA-2017038841

PATIENT
  Sex: Male

DRUGS (6)
  1. KEPPRA [Suspect]
     Active Substance: LEVETIRACETAM
     Dosage: 750 MG
     Route: 048
  2. KEPPRA [Suspect]
     Active Substance: LEVETIRACETAM
     Indication: TEMPORAL LOBE EPILEPSY
     Dosage: UNK
     Route: 048
  3. KEPPRA [Suspect]
     Active Substance: LEVETIRACETAM
     Dosage: 500MG
     Route: 048
  4. HUMIRA [Concomitant]
     Active Substance: ADALIMUMAB
     Indication: CROHN^S DISEASE
     Dosage: 40 MG, EV 2 WEEKS(QOW)
  5. KEPPRA [Suspect]
     Active Substance: LEVETIRACETAM
     Dosage: 250 MG, ONCE DAILY (QD)
     Route: 048
  6. TEGRETOL [Concomitant]
     Active Substance: CARBAMAZEPINE
     Indication: EPILEPSY

REACTIONS (13)
  - Eye injury [Recovering/Resolving]
  - Headache [Recovering/Resolving]
  - Fall [Recovering/Resolving]
  - Intentional product misuse [Unknown]
  - Balance disorder [Recovering/Resolving]
  - Facial bones fracture [Recovering/Resolving]
  - Dizziness [Recovering/Resolving]
  - Seizure [Recovering/Resolving]
  - Stress [Recovering/Resolving]
  - Drug ineffective [Unknown]
  - Syncope [Recovering/Resolving]
  - Platelet count decreased [Unknown]
  - Memory impairment [Recovering/Resolving]
